FAERS Safety Report 19690919 (Version 1)
Quarter: 2021Q3

REPORT INFORMATION
  Report Type: Spontaneous
  Country: US (occurrence: US)
  Receive Date: 20210812
  Receipt Date: 20210812
  Transmission Date: 20211014
  Serious: No
  Sender: FDA-Public Use
  Company Number: US-PFIZER INC-2021893487

PATIENT
  Age: 82 Year
  Sex: Male
  Weight: 113.4 kg

DRUGS (1)
  1. PHENYTOIN. [Suspect]
     Active Substance: PHENYTOIN
     Dosage: 3 IN THE MORNING AND 3 AT NIGHT

REACTIONS (2)
  - Skin disorder [Unknown]
  - Drug ineffective [Unknown]
